FAERS Safety Report 6995069-4 (Version None)
Quarter: 2010Q3

REPORT INFORMATION
  Report Type: 
  Country: None (occurrence: None)
  Receive Date: 20100917
  Receipt Date: 20090812
  Transmission Date: 20110219
  Serious: Yes (Other)
  Sender: FDA-Public Use
  Company Number: HQWYE810213APR06

PATIENT
  Sex: Female

DRUGS (7)
  1. PREMPRO [Suspect]
  2. PROVERA [Suspect]
  3. PROGESTERONE [Suspect]
  4. ESTRIOL [Suspect]
  5. TESTOSTERONE [Suspect]
  6. PREMARIN [Suspect]
  7. MEDROXYPROGESTERONE [Suspect]

REACTIONS (1)
  - BREAST CANCER [None]
